FAERS Safety Report 16918599 (Version 1)
Quarter: 2019Q4

REPORT INFORMATION
  Report Type: Spontaneous
  Country: US (occurrence: US)
  Receive Date: 20191015
  Receipt Date: 20191015
  Transmission Date: 20200122
  Serious: Yes (Death, Other)
  Sender: FDA-Public Use
  Company Number: US-FRESENIUS KABI-FK201911129

PATIENT
  Age: 53 Year
  Sex: Female

DRUGS (3)
  1. DEXAMETHASONE. [Concomitant]
     Active Substance: DEXAMETHASONE
     Indication: MONOCLONAL GAMMOPATHY
     Dosage: UNKNOWN
     Route: 065
  2. LENALIDOMIDE [Concomitant]
     Active Substance: LENALIDOMIDE
     Indication: MONOCLONAL GAMMOPATHY
     Dosage: UNKNOWN
     Route: 065
  3. BORTEZOMIB (MANUFACTURER UNKNOWN) [Suspect]
     Active Substance: BORTEZOMIB
     Indication: MONOCLONAL GAMMOPATHY
     Dosage: UNKNOWN
     Route: 065

REACTIONS (6)
  - Condition aggravated [Not Recovered/Not Resolved]
  - Pulmonary hypertension [Fatal]
  - Cardiac failure congestive [Fatal]
  - Acute kidney injury [Not Recovered/Not Resolved]
  - Thrombotic microangiopathy [Fatal]
  - Cardiac arrest [Fatal]
